FAERS Safety Report 24532884 (Version 1)
Quarter: 2024Q4

REPORT INFORMATION
  Report Type: Spontaneous
  Country: IN (occurrence: IN)
  Receive Date: 20241022
  Receipt Date: 20241022
  Transmission Date: 20250114
  Serious: Yes (Other)
  Sender: NOVARTIS
  Company Number: IN-SANDOZ-SDZ2024IN087707

PATIENT
  Sex: Male

DRUGS (2)
  1. TACROLIMUS [Suspect]
     Active Substance: TACROLIMUS
     Indication: Renal transplant
     Dosage: 2MG (9AM)- 1.5MG (9PM)
     Route: 048
  2. MYFORTIC [Suspect]
     Active Substance: MYCOPHENOLATE SODIUM
     Indication: Renal transplant
     Dosage: 720 MG, QD (360 MG, BID)
     Route: 048

REACTIONS (7)
  - New onset diabetes after transplantation [Unknown]
  - Rectal haemorrhage [Unknown]
  - Lower respiratory tract infection [Unknown]
  - Pancreatitis acute [Unknown]
  - Polycystic liver disease [Unknown]
  - Hypertension [Unknown]
  - Epistaxis [Unknown]
